FAERS Safety Report 9672441 (Version 2)
Quarter: 2013Q4

REPORT INFORMATION
  Report Type: Spontaneous
  Country: US (occurrence: US)
  Receive Date: 20131106
  Receipt Date: 20131106
  Transmission Date: 20140711
  Serious: Yes (Death, Other)
  Sender: FDA-Public Use
  Company Number: US-TAKEDA-TPA2012A08223

PATIENT
  Sex: 0

DRUGS (20)
  1. ACTOS [Suspect]
     Indication: TYPE 2 DIABETES MELLITUS
     Dosage: UNK
     Dates: start: 1990, end: 2003
  2. ACTOS [Suspect]
     Dosage: 15 MG, 30 MG, UNK
     Dates: start: 20030206, end: 200404
  3. ACTOS [Suspect]
     Dosage: 30 MG, 45 MG, UNK
     Dates: start: 200405, end: 200407
  4. ACTOS [Suspect]
     Dosage: 30 MG, UNK
     Dates: start: 200407, end: 200410
  5. ACTOS [Suspect]
     Dosage: 30 MG, 45 MG, UNK
     Dates: start: 200507, end: 200701
  6. ACTOS [Suspect]
     Dosage: UNK
     Dates: start: 200701, end: 200803
  7. ACTOS [Suspect]
     Dosage: 30 MG, UNK
     Dates: start: 200807
  8. METFORMIN [Concomitant]
     Dosage: 500 MG, UNK
     Dates: start: 2004, end: 2008
  9. METFORMIN [Concomitant]
     Dosage: 1000 MG, UNK
     Dates: start: 2009, end: 2010
  10. GLUCOPHAGE [Concomitant]
     Dosage: 500 MG, UNK
     Dates: start: 2002, end: 2003
  11. PRECOSE [Concomitant]
     Dosage: 100 MG, UNK
     Dates: start: 2002
  12. PRECOSE [Concomitant]
     Dosage: 100 MG, UNK
     Dates: start: 2003
  13. PRECOSE [Concomitant]
     Dosage: 100 MG, UNK
     Dates: start: 2005, end: 2007
  14. PRANDIN                            /01393601/ [Concomitant]
     Dosage: 1 MG, UNK
     Dates: start: 2007, end: 2009
  15. PRANDIN                            /01393601/ [Concomitant]
     Dosage: 2 MG, UNK
     Dates: start: 2009, end: 2010
  16. LANTUS [Concomitant]
     Dosage: 100 UNITS, UNK
     Dates: start: 2012
  17. GLUCOTROL [Concomitant]
     Dosage: 5 MG, UNK
     Dates: start: 2001, end: 2006
  18. AMARYL [Concomitant]
     Dosage: 4 MG, UNK
     Dates: start: 2007, end: 2010
  19. AMARYL [Concomitant]
     Dosage: 4 MG, UNK
     Dates: start: 2012
  20. NOVOLOG [Concomitant]
     Dosage: UNK
     Dates: start: 2010, end: 2012

REACTIONS (1)
  - Bladder cancer [Fatal]
